FAERS Safety Report 5760540-X (Version None)
Quarter: 2008Q2

REPORT INFORMATION
  Report Type: 
  Country: None (occurrence: None)
  Receive Date: 20080602
  Receipt Date: 20080516
  Transmission Date: 20081010
  Serious: Yes (Death, Hospitalization)
  Sender: FDA-Public Use
  Company Number: 2008AL005325

PATIENT
  Age: 70 Year
  Sex: Male

DRUGS (1)
  1. DIGOXIN [Suspect]
     Indication: ATRIAL FIBRILLATION
     Dosage: 0.125 MG, QD, PO
     Route: 048
     Dates: start: 19990101, end: 20080401

REACTIONS (8)
  - CARDIAC FAILURE [None]
  - DIZZINESS [None]
  - NAUSEA [None]
  - RENAL FAILURE [None]
  - SHOCK [None]
  - SKIN LACERATION [None]
  - VOMITING [None]
  - WOUND INFECTION STAPHYLOCOCCAL [None]
